FAERS Safety Report 9832145 (Version 2)
Quarter: 2014Q1

REPORT INFORMATION
  Report Type: Spontaneous
  Country: US (occurrence: US)
  Receive Date: 20140121
  Receipt Date: 20140326
  Transmission Date: 20141002
  Serious: No
  Sender: FDA-Public Use
  Company Number: US-TEVA-457613USA

PATIENT
  Age: 26 Year
  Sex: Female
  Weight: 113.5 kg

DRUGS (2)
  1. PLAN B ONE-STEP [Suspect]
     Indication: POST COITAL CONTRACEPTION
     Dosage: 1.5 MILLIGRAM DAILY;
     Route: 048
     Dates: start: 20131221, end: 20131221
  2. PLAN B ONE-STEP [Suspect]
     Dosage: 1.5 MILLIGRAM DAILY;
     Route: 048
     Dates: start: 20131222, end: 20131222

REACTIONS (3)
  - Vaginal discharge [Recovered/Resolved]
  - Menstruation irregular [Recovered/Resolved]
  - Inappropriate schedule of drug administration [Recovered/Resolved]
